FAERS Safety Report 10481303 (Version 1)
Quarter: 2014Q3

REPORT INFORMATION
  Report Type: Report from Study
  Country: US (occurrence: US)
  Receive Date: 20140929
  Receipt Date: 20140929
  Transmission Date: 20150326
  Serious: Yes (Other)
  Sender: FDA-Public Use
  Company Number: US-SA-2014SA130994

PATIENT
  Sex: Female

DRUGS (2)
  1. SOLOSTAR [Concomitant]
     Active Substance: DEVICE
  2. LANTUS SOLOSTAR [Suspect]
     Active Substance: INSULIN GLARGINE
     Indication: DIABETES MELLITUS
     Route: 065

REACTIONS (14)
  - Road traffic accident [Unknown]
  - Dyspepsia [Unknown]
  - Blood glucose increased [Unknown]
  - Dry skin [Unknown]
  - Sleep apnoea syndrome [Unknown]
  - Incorrect product storage [Unknown]
  - Fatigue [Unknown]
  - Alopecia [Unknown]
  - Swelling [Unknown]
  - Gastritis [Unknown]
  - Weight increased [Unknown]
  - Thyroid neoplasm [Unknown]
  - Feeling hot [Unknown]
  - Erythema [Unknown]
